FAERS Safety Report 9220494 (Version 5)
Quarter: 2013Q4

REPORT INFORMATION
  Report Type: Spontaneous
  Country: US (occurrence: US)
  Receive Date: 20130409
  Receipt Date: 20131004
  Transmission Date: 20140711
  Serious: Yes (Other)
  Sender: FDA-Public Use
  Company Number: US-BAYER-2013-044104

PATIENT
  Age: 24 Year
  Sex: Female
  Weight: 145.13 kg

DRUGS (4)
  1. MIRENA [Suspect]
     Indication: CONTRACEPTION
     Dosage: 20 MCG/24HR, CONT
     Route: 015
     Dates: start: 20100218
  2. PRENATAL VITAMINS [VIT C,VIT H,MIN NOS,VIT PP,RETINOL,VIT E,VIT B [Concomitant]
  3. FIORICET [Concomitant]
  4. PHENERGAN [Concomitant]
     Dosage: UNK

REACTIONS (6)
  - Pregnancy with contraceptive device [None]
  - Device expulsion [None]
  - Drug ineffective [None]
  - Chlamydial infection [None]
  - Hypertension [None]
  - Obesity [None]
